FAERS Safety Report 15209319 (Version 3)
Quarter: 2019Q1

REPORT INFORMATION
  Report Type: Report from Study
  Country: IT (occurrence: IT)
  Receive Date: 20180727
  Receipt Date: 20190221
  Transmission Date: 20190417
  Serious: Yes (Hospitalization)
  Sender: FDA-Public Use
  Company Number: IT-PFIZER INC-2018300698

PATIENT
  Age: 75 Year
  Sex: Female
  Weight: 65 kg

DRUGS (9)
  1. TRASTUZUMAB. [Suspect]
     Active Substance: TRASTUZUMAB
     Indication: BREAST CANCER
     Dosage: 520 MG, EVERY 3 WEEKS(MOST RECENT DOSE PRIOR TO THE EVENT: 15MAY2017)
     Route: 042
     Dates: start: 20170424
  2. TRASTUZUMAB EMTANSINE [Suspect]
     Active Substance: ADO-TRASTUZUMAB EMTANSINE
     Indication: BREAST CANCER
     Dosage: 3.6 MG/KG, EVERY 3 WEEKS
     Route: 042
     Dates: start: 20170817
  3. PERTUZUMAB. [Suspect]
     Active Substance: PERTUZUMAB
     Indication: BREAST CANCER
     Dosage: 840 MG, EVERY 3 WEEKS (MOST RECENT DOSE PRIOR TO THE EVENT: 15MAY2017)
     Route: 042
     Dates: start: 20170424
  4. MEDROL [Concomitant]
     Active Substance: METHYLPREDNISOLONE
     Dosage: UNK
     Route: 065
     Dates: start: 20180321
  5. ZEFFIX [Concomitant]
     Active Substance: LAMIVUDINE
     Dosage: UNK
     Route: 065
  6. DOCETAXEL. [Suspect]
     Active Substance: DOCETAXEL
     Indication: BREAST CANCER
     Dosage: 92.3 MG, EVERY 3 WEEKS (LAST RECEIVED: 17AUG2017)
     Route: 042
     Dates: start: 20170424, end: 20170817
  7. FLUOXETINA [Concomitant]
     Active Substance: FLUOXETINE HYDROCHLORIDE
     Dosage: UNK
     Route: 065
  8. XANAX [Concomitant]
     Active Substance: ALPRAZOLAM
     Dosage: UNK
     Route: 065
  9. SERETIDE [Concomitant]
     Active Substance: FLUTICASONE PROPIONATE\SALMETEROL XINAFOATE
     Dosage: UNK
     Route: 065
     Dates: start: 19720615

REACTIONS (1)
  - Urinary tract infection [Recovered/Resolved]

NARRATIVE: CASE EVENT DATE: 20180501
